FAERS Safety Report 25049505 (Version 1)
Quarter: 2025Q1

REPORT INFORMATION
  Report Type: Other
  Country: CA (occurrence: CA)
  Receive Date: 20250307
  Receipt Date: 20250307
  Transmission Date: 20250409
  Serious: Yes (Other)
  Sender: APOTEX
  Company Number: CA-APOTEX-2025AP002745

PATIENT
  Age: 74 Year
  Sex: Female
  Weight: 58.957 kg

DRUGS (1)
  1. PRAVASTATIN [Suspect]
     Active Substance: PRAVASTATIN
     Indication: Hypercholesterolaemia
     Route: 048

REACTIONS (2)
  - Pain in extremity [Recovered/Resolved]
  - Product substitution issue [Recovered/Resolved]
